FAERS Safety Report 14790364 (Version 6)
Quarter: 2020Q3

REPORT INFORMATION
  Report Type: Report from Study
  Country: ES (occurrence: ES)
  Receive Date: 20180423
  Receipt Date: 20190411
  Transmission Date: 20201104
  Serious: Yes (Hospitalization)
  Sender: FDA-Public Use
  Company Number: ES-ROCHE-2107958

PATIENT
  Age: 74 Year
  Sex: Female
  Weight: 75.3 kg

DRUGS (19)
  1. OBINUTUZUMAB. [Suspect]
     Active Substance: OBINUTUZUMAB
     Indication: B-CELL LYMPHOMA
     Dosage: ON DAYS 1, 8 AND 15 OF CYCLE 1 AND ON DAY 1 OF CYCLES 2 TO 6 ?DATE OF MOST RECENT DOSE OF OBINUTUZUM
     Route: 042
     Dates: start: 20180219
  2. OMEPRAZOLE. [Concomitant]
     Active Substance: OMEPRAZOLE
     Dosage: GASTRIC PROTECTOR
     Route: 065
     Dates: start: 20180216
  3. CODEISAN [Concomitant]
     Active Substance: CODEINE PHOSPHATE
     Indication: COUGH
     Route: 065
     Dates: start: 20180413, end: 20180418
  4. VORICONAZOL [Concomitant]
     Active Substance: VORICONAZOLE
     Indication: PROPHYLAXIS
     Route: 065
     Dates: start: 20180412, end: 20180418
  5. DOLANTINE [Concomitant]
     Active Substance: MEPERIDINE HYDROCHLORIDE
     Indication: PAIN
     Route: 065
     Dates: start: 20180411, end: 20180418
  6. LORMETAZEPAM [Concomitant]
     Active Substance: LORMETAZEPAM
     Indication: ANXIETY
     Route: 065
     Dates: start: 20180412, end: 20180418
  7. POLATUZUMAB VEDOTIN. [Suspect]
     Active Substance: POLATUZUMAB VEDOTIN
     Indication: B-CELL LYMPHOMA
     Dosage: 1.4 OR 1.8 MG/KG ON DAY 1 OF EACH 28?DAY CYCLE FOR UP TO 6 MONTHS?DATE OF MOST RECENT DOSE OF POLATU
     Route: 042
     Dates: start: 20180219
  8. LENALIDOMIDE [Suspect]
     Active Substance: LENALIDOMIDE
     Indication: B-CELL LYMPHOMA
     Dosage: 10, 15, OR 20 MG ON DAYS 1 TO 21 OF EACH 28?DAY CYCLE FOR UP TO 6 CYCLES?DATE OF MOST RECENT DOSE OF
     Route: 048
     Dates: start: 20180219
  9. ADIRO [Concomitant]
     Active Substance: ASPIRIN
     Route: 065
     Dates: start: 20180410, end: 20180418
  10. ALLOPURINOL. [Concomitant]
     Active Substance: ALLOPURINOL
     Dosage: SLT PROPHYLAXIS
     Route: 065
     Dates: start: 20180216
  11. DEXCHLORPHENIRAMINE [Concomitant]
     Active Substance: DEXCHLORPHENIRAMINE
     Indication: PROPHYLAXIS
     Route: 065
     Dates: start: 20180409, end: 20180428
  12. NOLOTIL [Concomitant]
     Indication: PAIN
     Route: 065
     Dates: start: 20180412, end: 20180418
  13. ADIRO [Concomitant]
     Active Substance: ASPIRIN
     Dosage: PROPHYLAXIS LENALIDOMIDE
     Route: 065
     Dates: start: 20180216
  14. PARACETAMOL [Concomitant]
     Active Substance: ACETAMINOPHEN
     Indication: PAIN PROPHYLAXIS
     Route: 065
     Dates: start: 20180326, end: 20180418
  15. DUPHALAC (SPAIN) [Concomitant]
     Route: 065
     Dates: start: 20180416, end: 20180418
  16. PARACETAMOL [Concomitant]
     Active Substance: ACETAMINOPHEN
     Route: 065
     Dates: start: 20180411, end: 20180418
  17. DUPHALAC (SPAIN) [Concomitant]
     Indication: CONSTIPATION
     Route: 065
     Dates: start: 20180411, end: 20180411
  18. OMEPRAZOL [Concomitant]
     Active Substance: OMEPRAZOLE
     Indication: PROPHYLAXIS
     Route: 065
     Dates: start: 20180410, end: 20180418
  19. TRANKIMAZIN [Concomitant]
     Active Substance: ALPRAZOLAM
     Indication: ANXIETY
     Route: 065
     Dates: start: 20180412, end: 20180418

REACTIONS (1)
  - Interstitial lung disease [Recovering/Resolving]

NARRATIVE: CASE EVENT DATE: 20180410
